FAERS Safety Report 25270061 (Version 1)
Quarter: 2025Q2

REPORT INFORMATION
  Report Type: Spontaneous
  Country: FR (occurrence: FR)
  Receive Date: 20250505
  Receipt Date: 20250505
  Transmission Date: 20250716
  Serious: Yes (Other)
  Sender: VIIV
  Company Number: None

PATIENT

DRUGS (1)
  1. JULUCA [Suspect]
     Active Substance: DOLUTEGRAVIR SODIUM\RILPIVIRINE HYDROCHLORIDE
     Indication: HIV infection
     Dosage: 1 DF, QD (1/D) (STRENGTH 50 MG/25 MG)
     Route: 048
     Dates: start: 201906, end: 202411

REACTIONS (1)
  - Intertrigo [Recovering/Resolving]

NARRATIVE: CASE EVENT DATE: 20230801
